FAERS Safety Report 4386885-6 (Version None)
Quarter: 2004Q2

REPORT INFORMATION
  Report Type: 
  Country: None (occurrence: None)
  Receive Date: 20040625
  Receipt Date: 20040609
  Transmission Date: 20050107
  Serious: Yes (Death)
  Sender: FDA-Public Use
  Company Number: 2004219986DE

PATIENT
  Age: 67 Year
  Sex: Female

DRUGS (4)
  1. CAMPTOSAR [Suspect]
     Indication: COLON CANCER
     Dosage: 109.6 MG, CYCLE 1, IV
     Route: 042
     Dates: start: 20040602
  2. SPHEREX DSM 45/25(AMILOMER) SOLUTION, STERILE [Suspect]
     Dosage: 450 MG, CYCLE 1, INTRA-ARTERIAL
     Route: 013
     Dates: start: 20040602
  3. FLUOROURACIL [Suspect]
     Indication: COLON CANCER
     Dosage: 2752 MG, CYCLE 1, IV
     Route: 042
     Dates: start: 20040602
  4. FOLINIC ACID(FOLINIC ACID) [Suspect]
     Indication: COLON CANCER
     Dosage: 664 MG, CYCLE 1, IV
     Route: 042
     Dates: start: 20040602

REACTIONS (6)
  - ABDOMINAL PAIN [None]
  - DRUG TOXICITY [None]
  - HEPATIC FAILURE [None]
  - HEPATIC INFARCTION [None]
  - MALIGNANT NEOPLASM PROGRESSION [None]
  - METASTASES TO LIVER [None]
